FAERS Safety Report 11742366 (Version 1)
Quarter: 2015Q4

REPORT INFORMATION
  Report Type: Spontaneous
  Country: FR (occurrence: FR)
  Receive Date: 20151116
  Receipt Date: 20151116
  Transmission Date: 20160304
  Serious: Yes (Hospitalization)
  Sender: FDA-Public Use
  Company Number: FR-TEVA-607664ISR

PATIENT
  Age: 13 Year
  Sex: Male

DRUGS (12)
  1. ETOPOSIDE TEVA [Suspect]
     Active Substance: ETOPOSIDE
     Dosage: 104 MILLIGRAM DAILY; FIRST COURSE
     Route: 041
     Dates: start: 20150916, end: 20150919
  2. HYDROXYZINE RENAUDIN 100 MG/2 ML [Suspect]
     Active Substance: HYDROXYZINE HYDROCHLORIDE
     Dosage: 25 MILLIGRAM DAILY; FIRST COURSE
     Route: 041
     Dates: start: 20150824, end: 20150827
  3. METHOTREXATE (METHOTREXATE SODIUM) [Suspect]
     Active Substance: METHOTREXATE SODIUM
     Dosage: 17.2 GRAM DAILY; THIRD COURSE
     Route: 041
     Dates: start: 20150909, end: 20150909
  4. LEVOFOLINATE DE CALCIUM ZENTIVA [Concomitant]
     Active Substance: LEVOLEUCOVORIN CALCIUM
     Dosage: 35.2 MILLIGRAM DAILY; FIRST COURSE
     Route: 042
     Dates: start: 20150825, end: 20150827
  5. METHOTREXATE (METHOTREXATE SODIUM) [Suspect]
     Active Substance: METHOTREXATE SODIUM
     Dosage: 17 GRAM DAILY; SECOND COURSE
     Route: 041
     Dates: start: 20150831, end: 20150831
  6. UROMITEXAN [Suspect]
     Active Substance: MESNA
     Dosage: 7800 MILLIGRAM DAILY; FIRST COURSE
     Route: 041
     Dates: start: 20150916, end: 20150919
  7. IFOSFAMIDE EG 40 MG/ML [Suspect]
     Active Substance: IFOSFAMIDE
     Dosage: 4240 MILLIGRAM DAILY; FIRST COURSE
     Route: 041
     Dates: start: 20150916, end: 20150919
  8. ONDANSETRON ACCORD 2 MG/ML [Suspect]
     Active Substance: ONDANSETRON
     Dosage: 8 MILLIGRAM DAILY; FIRST COURSE
     Route: 041
     Dates: start: 20150824, end: 20150829
  9. HYDROXYZINE RENAUDIN 100 MG/2 ML [Suspect]
     Active Substance: HYDROXYZINE HYDROCHLORIDE
     Dosage: 20 MILLIGRAM DAILY; SECOND COURSE
     Route: 041
     Dates: start: 20150916, end: 20150919
  10. METHOTREXATE (METHOTREXATE SODIUM) [Suspect]
     Active Substance: METHOTREXATE SODIUM
     Dosage: 17.6 GRAM DAILY; FIRST COURSE
     Route: 041
     Dates: start: 20150824, end: 20150824
  11. ONDANSETRON ACCORD 2 MG/ML [Suspect]
     Active Substance: ONDANSETRON
     Dosage: 16 MILLIGRAM DAILY; SECOND COURSE
     Route: 041
     Dates: start: 20150916, end: 20150919
  12. METHYLPREDNISOLONE MYLAN [Suspect]
     Active Substance: METHYLPREDNISOLONE
     Dosage: 80 MILLIGRAM DAILY; FIRST COURSE
     Route: 041
     Dates: start: 20150916, end: 20150919

REACTIONS (1)
  - Encephalopathy [Recovered/Resolved]

NARRATIVE: CASE EVENT DATE: 20150918
